FAERS Safety Report 12301382 (Version 2)
Quarter: 2016Q2

REPORT INFORMATION
  Report Type: Report from Study
  Country: CH (occurrence: CH)
  Receive Date: 20160425
  Receipt Date: 20160504
  Transmission Date: 20160815
  Serious: Yes (Hospitalization)
  Sender: FDA-Public Use
  Company Number: CH-ABBVIE-16P-151-1607784-00

PATIENT
  Age: 82 Year
  Sex: Male

DRUGS (3)
  1. DUODOPA [Suspect]
     Active Substance: CARBIDOPA\LEVODOPA
     Indication: PARKINSON^S DISEASE
     Dosage: CONTINUOUS RATE: 5.8 ML/H
     Route: 050
     Dates: start: 201604, end: 20160421
  2. DUODOPA [Suspect]
     Active Substance: CARBIDOPA\LEVODOPA
     Dosage: 5.0 ML/H
     Route: 050
     Dates: start: 20160421, end: 20160421
  3. DUODOPA [Suspect]
     Active Substance: CARBIDOPA\LEVODOPA
     Dosage: 4.6 ML/H AT NOON
     Route: 050
     Dates: start: 20160421

REACTIONS (9)
  - Akinesia [Not Recovered/Not Resolved]
  - Confusional state [Unknown]
  - Mobility decreased [Not Recovered/Not Resolved]
  - Hallucination [Unknown]
  - Abdominal pain [Recovering/Resolving]
  - Constipation [Recovered/Resolved]
  - Device issue [Unknown]
  - Back pain [Unknown]
  - Device dislocation [Unknown]

NARRATIVE: CASE EVENT DATE: 201604
